FAERS Safety Report 12601716 (Version 1)
Quarter: 2016Q3

REPORT INFORMATION
  Report Type: Spontaneous
  Country: US (occurrence: None)
  Receive Date: 20160727
  Receipt Date: 20160727
  Transmission Date: 20161109
  Serious: No
  Sender: FDA-Public Use
  Company Number: None

PATIENT
  Age: 64 Year
  Sex: Female

DRUGS (12)
  1. HEPARIN [Suspect]
     Active Substance: HEPARIN SODIUM
     Indication: DEEP VEIN THROMBOSIS
     Dosage: 600 UNITS/HR CONTINUOUS IV
     Route: 042
     Dates: start: 20160526, end: 20160624
  2. CITRIC ACID [Concomitant]
     Active Substance: CITRIC ACID MONOHYDRATE
  3. INSULIN [Concomitant]
     Active Substance: INSULIN NOS
  4. MIDODRINE [Concomitant]
     Active Substance: MIDODRINE
  5. METRONIDAZOLE. [Concomitant]
     Active Substance: METRONIDAZOLE
  6. VANCOMYCIN [Concomitant]
     Active Substance: VANCOMYCIN
  7. CEFTAZIDIME. [Concomitant]
     Active Substance: CEFTAZIDIME
  8. FERROUS SULFATE. [Concomitant]
     Active Substance: FERROUS SULFATE
  9. SODIUM CITRATE. [Concomitant]
     Active Substance: SODIUM CITRATE
  10. EPINEPHRINE. [Concomitant]
     Active Substance: EPINEPHRINE
  11. FOLIC ACID. [Concomitant]
     Active Substance: FOLIC ACID
  12. LANSOPRAZOLE. [Concomitant]
     Active Substance: LANSOPRAZOLE

REACTIONS (3)
  - Mydriasis [None]
  - Mobility decreased [None]
  - Cerebral infarction [None]

NARRATIVE: CASE EVENT DATE: 20160624
